FAERS Safety Report 10189706 (Version 1)
Quarter: 2014Q2

REPORT INFORMATION
  Report Type: Spontaneous
  Country: US (occurrence: None)
  Receive Date: 20140521
  Receipt Date: 20140521
  Transmission Date: 20141212
  Serious: Yes (Hospitalization)
  Sender: FDA-Public Use
  Company Number: None

PATIENT
  Age: 86 Year
  Sex: Male
  Weight: 70.31 kg

DRUGS (13)
  1. ALIMTA [Suspect]
  2. ALENDRONATE [Concomitant]
  3. ASPIRIN EC [Concomitant]
  4. ATORVASTATIN [Concomitant]
  5. BICALUTAMIDE [Concomitant]
  6. FLUDROCORTISONE [Concomitant]
  7. FOLIC ACID [Concomitant]
  8. LEUPROLIDE DEPOT [Concomitant]
  9. METOPROLOL SUCCINATE [Concomitant]
  10. KLOR-CON [Concomitant]
  11. PREDNISONE [Concomitant]
  12. SAXAGLIPTIN [Concomitant]
  13. TELMISARTAN [Concomitant]

REACTIONS (2)
  - Haemorrhagic arteriovenous malformation [None]
  - Gastrointestinal arteriovenous malformation [None]
